FAERS Safety Report 9129160 (Version 1)
Quarter: 2013Q1

REPORT INFORMATION
  Report Type: Spontaneous
  Country: US (occurrence: US)
  Receive Date: 20130228
  Receipt Date: 20130228
  Transmission Date: 20140127
  Serious: Yes (Disabling, Other)
  Sender: FDA-Public Use
  Company Number: US-ELI_LILLY_AND_COMPANY-US201302007670

PATIENT
  Sex: Female

DRUGS (1)
  1. BYETTA [Suspect]
     Dosage: UNK, UNKNOWN
     Route: 058

REACTIONS (6)
  - Patella fracture [Unknown]
  - Ligament rupture [Unknown]
  - Pain [Unknown]
  - Ulcer [Unknown]
  - Malaise [Unknown]
  - Fall [Recovered/Resolved]
